FAERS Safety Report 7780724-9 (Version None)
Quarter: 2011Q3

REPORT INFORMATION
  Report Type: 
  Country: None (occurrence: None)
  Receive Date: 20110927
  Receipt Date: 20110531
  Transmission Date: 20111222
  Serious: No
  Sender: FDA-Public Use
  Company Number: US-BRISTOL-MYERS SQUIBB COMPANY-15765340

PATIENT
  Age: 75 Year
  Sex: Male
  Weight: 73 kg

DRUGS (3)
  1. AVAPRO [Suspect]
     Indication: BLOOD PRESSURE INCREASED
     Dosage: 1DF= 300/25;
     Route: 048
     Dates: start: 20110101
  2. AVALIDE [Concomitant]
  3. TYLENOL-500 [Concomitant]
     Indication: PAIN

REACTIONS (1)
  - DYSGEUSIA [None]
